FAERS Safety Report 17750303 (Version 1)
Quarter: 2020Q2

REPORT INFORMATION
  Report Type: Spontaneous
  Country: US (occurrence: US)
  Receive Date: 20200506
  Receipt Date: 20200506
  Transmission Date: 20200714
  Serious: No
  Sender: FDA-Public Use
  Company Number: US-PFIZER INC-2020179435

PATIENT
  Sex: Female

DRUGS (1)
  1. COLESTIPOL HCL [Suspect]
     Active Substance: COLESTIPOL HYDROCHLORIDE
     Indication: DIARRHOEA
     Dosage: 1 G, 1X/DAY (1 G COLESTIPOL TABLETS TO BE TAKEN BEFORE BEDTIME)

REACTIONS (2)
  - Off label use [Unknown]
  - Product use in unapproved indication [Unknown]
